FAERS Safety Report 8082593-9 (Version None)
Quarter: 2012Q1

REPORT INFORMATION
  Report Type: 
  Country: None (occurrence: None)
  Receive Date: 20120127
  Receipt Date: 20110222
  Transmission Date: 20120608
  Serious: No
  Sender: FDA-Public Use
  Company Number: US-ABBOTT-11P-163-0707041-00

PATIENT
  Age: 78 Year
  Sex: Male

DRUGS (8)
  1. LOPRESSOR [Concomitant]
     Indication: HYPERTENSION
  2. ACETAMINOPHEN [Concomitant]
     Indication: HEADACHE
  3. LOMOTIL [Concomitant]
     Indication: DIARRHOEA
  4. XANAX [Concomitant]
     Indication: ANXIETY
     Dosage: 1/2 TAB
  5. MULTI-VITAMIN [Concomitant]
     Indication: PRODUCT USED FOR UNKNOWN INDICATION
     Dosage: DAILY
  6. HUMIRA [Suspect]
     Indication: CROHN'S DISEASE
     Dates: start: 20110114
  7. VITAMIN B-12 [Concomitant]
     Indication: PRODUCT USED FOR UNKNOWN INDICATION
     Route: 050
  8. MAGESE LIQUID [Concomitant]
     Indication: APPETITE DISORDER
     Dosage: 1 TABLESPOON DAILY

REACTIONS (2)
  - MALAISE [None]
  - INJECTION SITE ERYTHEMA [None]
